FAERS Safety Report 5546716-5 (Version None)
Quarter: 2007Q4

REPORT INFORMATION
  Report Type: 
  Country: None (occurrence: None)
  Receive Date: 20071211
  Receipt Date: 20071206
  Transmission Date: 20080405
  Serious: Yes (Hospitalization)
  Sender: FDA-Public Use
  Company Number: FR-JNJFOC-20071201580

PATIENT
  Sex: Female
  Weight: 3.08 kg

DRUGS (4)
  1. RISPERDAL [Suspect]
     Indication: DRUG EXPOSURE DURING PREGNANCY
     Route: 015
  2. TERCIAN [Suspect]
     Indication: DRUG EXPOSURE DURING PREGNANCY
  3. ZOLOFT [Suspect]
     Indication: DRUG EXPOSURE DURING PREGNANCY
  4. DOGMATIL [Suspect]
     Indication: DRUG EXPOSURE DURING PREGNANCY

REACTIONS (2)
  - BRADYCARDIA NEONATAL [None]
  - DRUG EXPOSURE DURING PREGNANCY [None]
